FAERS Safety Report 7706448-1 (Version None)
Quarter: 2011Q3

REPORT INFORMATION
  Report Type: 
  Country: None (occurrence: None)
  Receive Date: 20110818
  Receipt Date: 20110818
  Transmission Date: 20111222
  Serious: Yes (Hospitalization, Other)
  Sender: FDA-Public Use
  Company Number: DSM-2011-00766

PATIENT
  Age: 31 Year
  Sex: Female

DRUGS (2)
  1. OLMESARTAN MEDOXOMIL/AMLODIPINE BESYLATE/HYDROCHLOROTHIAZIDE [Suspect]
     Indication: GESTATIONAL HYPERTENSION
     Dosage: 40/10/25 MG, ORAL
     Route: 048
     Dates: start: 20110523, end: 20110101
  2. FUROSEMID 1 A PHARMA (FUROSEMIDE-) (40 MILLIGRAM) (FUROSEMIDE) [Concomitant]

REACTIONS (3)
  - MATERNAL EXPOSURE DURING PREGNANCY [None]
  - OLIGOHYDRAMNIOS [None]
  - STILLBIRTH [None]
